FAERS Safety Report 18245748 (Version 1)
Quarter: 2020Q3

REPORT INFORMATION
  Report Type: Spontaneous
  Country: US (occurrence: US)
  Receive Date: 20200908
  Receipt Date: 20200908
  Transmission Date: 20201103
  Serious: Yes (Hospitalization)
  Sender: FDA-Public Use
  Company Number: None

PATIENT
  Age: 74 Year
  Sex: Female

DRUGS (18)
  1. LEVOTHYROXIN [Concomitant]
     Active Substance: LEVOTHYROXINE
  2. AMOXICILLIN. [Concomitant]
     Active Substance: AMOXICILLIN
  3. AZITHROMYCIN ANHYDROUS. [Concomitant]
     Active Substance: AZITHROMYCIN ANHYDROUS
  4. CIPROFLOXACN [Concomitant]
     Active Substance: CIPROFLOXACIN
  5. ESTRADIOL. [Concomitant]
     Active Substance: ESTRADIOL
  6. METOPROL SUC ER [Concomitant]
  7. PANTOPRAZOLE [Concomitant]
     Active Substance: PANTOPRAZOLE
  8. CLOPIDOGREL [Concomitant]
     Active Substance: CLOPIDOGREL BISULFATE
  9. OSELTAMIVIR [Concomitant]
     Active Substance: OSELTAMIVIR
  10. LISINOPRIL. [Concomitant]
     Active Substance: LISINOPRIL
  11. MUCUS + CHST LIQ [Concomitant]
  12. PROAIR HFA [Concomitant]
     Active Substance: ALBUTEROL SULFATE
  13. REPATHA [Suspect]
     Active Substance: EVOLOCUMAB
     Indication: PRODUCT USED FOR UNKNOWN INDICATION
     Dosage: 420MG Q30D SQ
     Route: 058
  14. CEPHALEXIN. [Concomitant]
     Active Substance: CEPHALEXIN
  15. NYSTATIN OIN [Concomitant]
  16. MAGNESIUM?OX [Concomitant]
  17. MUPIROCIN. [Concomitant]
     Active Substance: MUPIROCIN
  18. TRELEGY ELLIPT [Concomitant]

REACTIONS (1)
  - Hospitalisation [None]

NARRATIVE: CASE EVENT DATE: 20200904
